FAERS Safety Report 7365207-2 (Version None)
Quarter: 2011Q1

REPORT INFORMATION
  Report Type: 
  Country: None (occurrence: None)
  Receive Date: 20110321
  Receipt Date: 20110310
  Transmission Date: 20110831
  Serious: Yes (Other)
  Sender: FDA-Public Use
  Company Number: US-BAYER-2011-022104

PATIENT
  Sex: Female

DRUGS (2)
  1. AVELOX [Suspect]
  2. SUDAFED 12 HOUR [Concomitant]

REACTIONS (1)
  - PSYCHOTIC DISORDER [None]
